FAERS Safety Report 7565900-2 (Version None)
Quarter: 2011Q2

REPORT INFORMATION
  Report Type: 
  Country: None (occurrence: None)
  Receive Date: 20110623
  Receipt Date: 20110621
  Transmission Date: 20111010
  Serious: Yes (Other)
  Sender: FDA-Public Use
  Company Number: US-PFIZER INC-2011137309

PATIENT
  Sex: Male
  Weight: 99.773 kg

DRUGS (5)
  1. TIKOSYN [Suspect]
     Indication: ATRIAL FIBRILLATION
     Dosage: 250 UG, 2X/DAY
     Route: 048
     Dates: start: 20110613
  2. LISINOPRIL [Concomitant]
     Indication: HYPERTENSION
     Dosage: 10 MG, DAILY
     Route: 048
  3. BISOPROLOL [Concomitant]
     Indication: HYPERTENSION
     Dosage: 10 MG, DAILY
     Route: 048
  4. TYLENOL-500 [Concomitant]
     Indication: HEADACHE
     Dosage: 1000 MG, 2X/DAY
     Route: 048
     Dates: start: 20110614, end: 20110614
  5. TYLENOL-500 [Concomitant]
     Indication: PAIN IN EXTREMITY
     Dosage: 10000 MG, 2X/DAY
     Dates: start: 20110620

REACTIONS (5)
  - HEADACHE [None]
  - PAIN IN EXTREMITY [None]
  - CARDIOVERSION [None]
  - TONGUE BITING [None]
  - OEDEMA PERIPHERAL [None]
